FAERS Safety Report 8029503-8 (Version None)
Quarter: 2012Q1

REPORT INFORMATION
  Report Type: 
  Country: None (occurrence: None)
  Receive Date: 20120109
  Receipt Date: 20111228
  Transmission Date: 20120608
  Serious: Yes (Hospitalization)
  Sender: FDA-Public Use
  Company Number: US-BIOGENIDEC-2007BI009072

PATIENT
  Age: 55 Year
  Sex: Female
  Weight: 56 kg

DRUGS (9)
  1. AVONEX [Suspect]
     Indication: MULTIPLE SCLEROSIS
     Route: 030
     Dates: start: 20000101, end: 20040101
  2. AVONEX [Suspect]
     Route: 030
     Dates: start: 20070501, end: 20070903
  3. AMPYRA [Concomitant]
     Indication: GAIT DISTURBANCE
     Dates: start: 20100809
  4. AVONEX [Suspect]
     Route: 030
     Dates: start: 20050101, end: 20070101
  5. TIZANIDINE HCL [Concomitant]
     Indication: MUSCLE SPASTICITY
     Dates: start: 20110101, end: 20110101
  6. AVONEX [Suspect]
     Route: 030
     Dates: start: 20080108, end: 20090801
  7. AVONEX [Suspect]
     Route: 030
     Dates: start: 20090829
  8. AVONEX [Suspect]
     Route: 030
     Dates: start: 19970812, end: 19990224
  9. BACLOFEN [Concomitant]
     Indication: MUSCLE SPASTICITY
     Dates: start: 20100101, end: 20100101

REACTIONS (23)
  - NERVE COMPRESSION [None]
  - FALL [None]
  - HEMIPARESIS [None]
  - SCAR [None]
  - PARAESTHESIA [None]
  - OSTEOPENIA [None]
  - PERONEAL NERVE PALSY [None]
  - INFLUENZA LIKE ILLNESS [None]
  - TRIGEMINAL NEURALGIA [None]
  - VITAMIN D DEFICIENCY [None]
  - OSTEOPOROSIS [None]
  - NECK PAIN [None]
  - ROTATOR CUFF SYNDROME [None]
  - GAIT DISTURBANCE [None]
  - ARTHRALGIA [None]
  - WHITE BLOOD CELL COUNT DECREASED [None]
  - MUSCLE SPASTICITY [None]
  - SOMNOLENCE [None]
  - INTERVERTEBRAL DISC PROTRUSION [None]
  - THINKING ABNORMAL [None]
  - CARPAL TUNNEL SYNDROME [None]
  - DYSPNOEA [None]
  - URTICARIA [None]
